FAERS Safety Report 8374906-5 (Version None)
Quarter: 2012Q2

REPORT INFORMATION
  Report Type: 
  Country: None (occurrence: None)
  Receive Date: 20120521
  Receipt Date: 20120516
  Transmission Date: 20120825
  Serious: Yes (Hospitalization)
  Sender: FDA-Public Use
  Company Number: US-AMGEN-USASP2012030961

PATIENT
  Age: 42 Year
  Sex: Male

DRUGS (2)
  1. ENBREL [Suspect]
     Indication: PSORIATIC ARTHROPATHY
     Dosage: 50 MG, QWK
     Dates: start: 20120201
  2. ENBREL [Suspect]
     Indication: PSORIASIS

REACTIONS (5)
  - HYPERTENSION [None]
  - WEIGHT INCREASED [None]
  - OROPHARYNGEAL PAIN [None]
  - NASOPHARYNGITIS [None]
  - NASAL CONGESTION [None]
